FAERS Safety Report 12613346 (Version 1)
Quarter: 2016Q3

REPORT INFORMATION
  Report Type: Spontaneous
  Country: US (occurrence: US)
  Receive Date: 20160802
  Receipt Date: 20160802
  Transmission Date: 20161109
  Serious: No
  Sender: FDA-Public Use
  Company Number: US-BAYER-2016-141411

PATIENT
  Age: 81 Year
  Sex: Female
  Weight: 45.35 kg

DRUGS (3)
  1. MIRALAX [Suspect]
     Active Substance: POLYETHYLENE GLYCOL 3350
     Indication: COLONOSCOPY
     Dosage: 255 GM OF MIRALAX WITH 64OZ OF GATORADE
     Route: 048
     Dates: start: 20160720, end: 20160720
  2. ZETIA [Concomitant]
     Active Substance: EZETIMIBE
  3. DILTIAZEM. [Concomitant]
     Active Substance: DILTIAZEM

REACTIONS (4)
  - Circumstance or information capable of leading to medication error [None]
  - Product use issue [None]
  - Product use issue [None]
  - Off label use [None]

NARRATIVE: CASE EVENT DATE: 20160720
